FAERS Safety Report 9171275 (Version 1)
Quarter: 2013Q1

REPORT INFORMATION
  Report Type: Spontaneous
  Country: GB (occurrence: None)
  Receive Date: 20130308
  Receipt Date: 20130308
  Transmission Date: 20140127
  Serious: Yes (Other)
  Sender: FDA-Public Use
  Company Number: KAD201302-000285

PATIENT
  Age: 49 Year
  Sex: Male

DRUGS (3)
  1. RIBAVIRIN [Suspect]
     Indication: HEPATITIS C
     Route: 048
  2. TELAPREVIR (TELAPREVIR) [Suspect]
     Indication: HEPATITIS C
     Dosage: 750 MG TABLET EVERY 8 HOURS
     Route: 048
     Dates: start: 20120807, end: 20121030
  3. PEGINTERFERON ALFA-2B (PEGINTERFERON ALFA-2B) [Suspect]
     Indication: HEPATITIS C
     Dosage: ONCE WEEKLY, SUBCUTANEOUS
     Route: 058
     Dates: start: 20120807

REACTIONS (27)
  - Abdominal pain [None]
  - Abdominal pain upper [None]
  - Amnesia [None]
  - Anaemia [None]
  - Anorectal discomfort [None]
  - Anxiety [None]
  - Arthralgia [None]
  - Asthenia [None]
  - Depressed mood [None]
  - Disturbance in attention [None]
  - Dizziness [None]
  - Dysgeusia [None]
  - Dyspnoea [None]
  - Fatigue [None]
  - Gastrointestinal disorder [None]
  - Headache [None]
  - Hypotension [None]
  - Impaired driving ability [None]
  - Insomnia [None]
  - Lethargy [None]
  - Nausea [None]
  - Pain [None]
  - Pain in extremity [None]
  - Photophobia [None]
  - Pollakiuria [None]
  - Rectal haemorrhage [None]
  - Vomiting [None]
